FAERS Safety Report 23472687 (Version 4)
Quarter: 2024Q1

REPORT INFORMATION
  Report Type: Spontaneous
  Country: US (occurrence: US)
  Receive Date: 20240202
  Receipt Date: 20240327
  Transmission Date: 20240410
  Serious: Yes (Other)
  Sender: FDA-Public Use
  Company Number: US-ABBVIE-5615875

PATIENT

DRUGS (2)
  1. HUMIRA [Suspect]
     Active Substance: ADALIMUMAB
     Indication: Product used for unknown indication
     Route: 058
  2. HUMIRA [Suspect]
     Active Substance: ADALIMUMAB
     Route: 058

REACTIONS (12)
  - Neoplasm [Unknown]
  - Asthenia [Unknown]
  - Fungal infection [Unknown]
  - Immunodeficiency [Unknown]
  - Brain injury [Unknown]
  - Illness [Unknown]
  - Fatigue [Unknown]
  - Scar [Unknown]
  - Optic nerve injury [Unknown]
  - Peripheral nerve injury [Unknown]
  - Ear haemorrhage [Unknown]
  - Pain [Unknown]
